FAERS Safety Report 9761809 (Version 1)
Quarter: 2013Q4

REPORT INFORMATION
  Report Type: Spontaneous
  Country: US (occurrence: US)
  Receive Date: 20131216
  Receipt Date: 20131216
  Transmission Date: 20140711
  Serious: No
  Sender: FDA-Public Use
  Company Number: US-BIOGENIDEC-2013BI103852

PATIENT
  Age: 50 Year
  Sex: Female
  Weight: 63 kg

DRUGS (4)
  1. TECFIDERA [Suspect]
     Indication: MULTIPLE SCLEROSIS
     Route: 048
     Dates: start: 20130802
  2. BUTALBITAL [Concomitant]
     Indication: MIGRAINE
  3. CAFFEINE [Concomitant]
     Indication: MIGRAINE
  4. ASPIRIN [Concomitant]
     Indication: MIGRAINE

REACTIONS (1)
  - Headache [Unknown]
